FAERS Safety Report 10239554 (Version 1)
Quarter: 2014Q2

REPORT INFORMATION
  Report Type: Spontaneous
  Country: AR (occurrence: AR)
  Receive Date: 20140616
  Receipt Date: 20140616
  Transmission Date: 20141212
  Serious: Yes (Death, Other)
  Sender: FDA-Public Use
  Company Number: AR-BRISTOL-MYERS SQUIBB COMPANY-20659710

PATIENT
  Age: 70 Year
  Sex: Male

DRUGS (1)
  1. YERVOY [Suspect]

REACTIONS (4)
  - Death [Fatal]
  - Intestinal perforation [Unknown]
  - Gastrointestinal necrosis [Unknown]
  - Diarrhoea [Not Recovered/Not Resolved]
